FAERS Safety Report 15585183 (Version 1)
Quarter: 2018Q4

REPORT INFORMATION
  Report Type: Spontaneous
  Country: US (occurrence: US)
  Receive Date: 20181102
  Receipt Date: 20181102
  Transmission Date: 20190205
  Serious: Yes (Other)
  Sender: FDA-Public Use
  Company Number: US-MYLANLABS-2018M1080249

PATIENT
  Sex: Female
  Weight: 77 kg

DRUGS (1)
  1. LORAZEPAM TABLETS USP [Suspect]
     Active Substance: LORAZEPAM
     Indication: ANXIETY
     Dosage: 8 MG, QD
     Route: 048
     Dates: start: 2006

REACTIONS (6)
  - Liver disorder [Not Recovered/Not Resolved]
  - Cognitive disorder [Not Recovered/Not Resolved]
  - Hepatic steatosis [Not Recovered/Not Resolved]
  - Amnesia [Not Recovered/Not Resolved]
  - Irritable bowel syndrome [Recovering/Resolving]
  - Depression [Not Recovered/Not Resolved]
